FAERS Safety Report 4619204-8 (Version None)
Quarter: 2005Q1

REPORT INFORMATION
  Report Type: 
  Country: None (occurrence: None)
  Receive Date: 20050325
  Receipt Date: 20050316
  Transmission Date: 20050727
  Serious: Yes (Other)
  Sender: FDA-Public Use
  Company Number: US-GLAXOSMITHKLINE-A0549994A

PATIENT
  Age: 85 Year
  Sex: Female
  Weight: 86 kg

DRUGS (2)
  1. TUMS E-X TABLETS [Suspect]
     Indication: DYSPEPSIA
     Route: 048
     Dates: start: 19950101
  2. HYDROCHLOROTHIAZIDE [Concomitant]
     Indication: HYPERTENSION
     Dosage: 50MG PER DAY
     Route: 048

REACTIONS (3)
  - DIABETES MELLITUS [None]
  - DIZZINESS [None]
  - HYPOGLYCAEMIA [None]
